FAERS Safety Report 12678344 (Version 1)
Quarter: 2016Q3

REPORT INFORMATION
  Report Type: Report from Study
  Country: AU (occurrence: AU)
  Receive Date: 20160823
  Receipt Date: 20160823
  Transmission Date: 20161109
  Serious: Yes (Hospitalization)
  Sender: FDA-Public Use
  Company Number: AU-PFIZER INC-2016392836

PATIENT
  Age: 69 Year
  Sex: Female
  Weight: 66.5 kg

DRUGS (11)
  1. BOSENTAN. [Suspect]
     Active Substance: BOSENTAN
     Indication: PULMONARY HYPERTENSION
     Dosage: 250 MG, TOTAL DAILY DOSE
     Dates: start: 20120910
  2. COVERSYL [Concomitant]
     Active Substance: PERINDOPRIL
     Indication: HYPERTENSION
     Dosage: 2.5 MG, TOTAL DAILY DOSE
  3. ATORVASTATIN [Concomitant]
     Active Substance: ATORVASTATIN
     Dosage: 20 MG, TOTAL DAILY DOSE
     Dates: start: 2006
  4. WARFARIN [Concomitant]
     Active Substance: WARFARIN
     Indication: ATRIAL FIBRILLATION
     Dosage: 3 MG, TOTAL DAILY DOSE
     Dates: start: 2006
  5. BISOPROLOL [Concomitant]
     Active Substance: BISOPROLOL
     Indication: MYOCARDIAL INFARCTION
     Dosage: 5 MG, TOTAL DAILY DOSE
     Dates: start: 2006
  6. SILDENAFIL CITRATE. [Suspect]
     Active Substance: SILDENAFIL CITRATE
     Indication: PULMONARY HYPERTENSION
     Dosage: 75 MG, TOTAL DAILY DOSE
     Dates: start: 20160511
  7. CALCITROL [Concomitant]
     Active Substance: CALCITRIOL
     Dosage: 100 MCG, TOTAL DAILY DOSE
     Dates: start: 201502
  8. UT-15C SR [Suspect]
     Active Substance: TREPROSTINIL DIOLAMINE
     Indication: PULMONARY ARTERIAL HYPERTENSION
     Dosage: 1.5 MG, TID
     Route: 048
     Dates: start: 20160511
  9. FRUSEMIDE [Concomitant]
     Active Substance: FUROSEMIDE
     Indication: PULMONARY ARTERIAL HYPERTENSION
     Dosage: 120 MG, TOTAL DAILY DOSE
     Dates: start: 2006, end: 20160722
  10. ZYLOPRIM [Concomitant]
     Active Substance: ALLOPURINOL
     Dosage: 100 MG, TOTAL DAILY DOSE
     Dates: start: 2006
  11. PROLIA [Concomitant]
     Active Substance: DENOSUMAB
     Dosage: 60 MG, TOTAL DAILY DOSE
     Dates: start: 2014

REACTIONS (2)
  - Right ventricular failure [Recovered/Resolved]
  - Condition aggravated [Recovered/Resolved]

NARRATIVE: CASE EVENT DATE: 20160720
